FAERS Safety Report 18377194 (Version 3)
Quarter: 2024Q2

REPORT INFORMATION
  Report Type: Other
  Country: FR (occurrence: None)
  Receive Date: 20201013
  Receipt Date: 20240509
  Transmission Date: 20240716
  Serious: Yes (Death, Other)
  Sender: FDA-Public Use
  Company Number: FR-ROCHE-2688673

PATIENT

DRUGS (10)
  1. OBINUTUZUMAB [Suspect]
     Active Substance: OBINUTUZUMAB
     Indication: Mantle cell lymphoma
     Dosage: ON DAY 1 (CYCLE 1 DAY 1), ON DAY 8 AND 15, DAY 1 AT CYCLES 2, 3, 4, ON 8 DAYS BEFORE TRANSPLANTATION
     Route: 042
  2. OBINUTUZUMAB [Suspect]
     Active Substance: OBINUTUZUMAB
     Dosage: MAINTENANCE SCHEDULE ONCE EVERY 2 MONTHS FOR 3 YEARS
     Route: 042
  3. DEXAMETHASONE [Suspect]
     Active Substance: DEXAMETHASONE
     Indication: Mantle cell lymphoma
     Dosage: ON DAYS 1 TO 4
     Route: 042
  4. CYTARABINE [Suspect]
     Active Substance: CYTARABINE
     Indication: Mantle cell lymphoma
     Dosage: 2 G/M2 ON DAY 1
     Route: 042
  5. CISPLATIN [Suspect]
     Active Substance: CISPLATIN
     Indication: Mantle cell lymphoma
     Dosage: ON DAY 1
     Route: 042
  6. CARMUSTINE [Suspect]
     Active Substance: CARMUSTINE
     Indication: Mantle cell lymphoma
     Dosage: 7 DAYS BEFORE TRANSPLANTATION
     Route: 065
  7. ETOPOSIDE [Suspect]
     Active Substance: ETOPOSIDE
     Indication: Mantle cell lymphoma
     Dosage: FROM DAY 6 TO DAY 3 BEFORE TRANSPLANTATION
     Route: 065
  8. MELPHALAN [Suspect]
     Active Substance: MELPHALAN
     Indication: Mantle cell lymphoma
     Dosage: ON DAY 2 BEFORE TRANSPLANTATION
     Route: 065
  9. CARBOPLATIN [Suspect]
     Active Substance: CARBOPLATIN
     Indication: Mantle cell lymphoma
     Route: 065
  10. OXALIPLATIN [Suspect]
     Active Substance: OXALIPLATIN
     Indication: Mantle cell lymphoma
     Route: 065

REACTIONS (59)
  - COVID-19 pneumonia [Fatal]
  - Myocardial infarction [Fatal]
  - Diarrhoea [Not Recovered/Not Resolved]
  - Abdominal pain upper [Recovered/Resolved]
  - Pneumonia [Recovered/Resolved]
  - Sinusitis [Recovered/Resolved]
  - Tuberculosis [Recovered/Resolved]
  - Infusion related reaction [Recovered/Resolved]
  - Acute kidney injury [Recovered/Resolved]
  - Neutropenia [Unknown]
  - Anaemia [Recovered/Resolved]
  - Leukopenia [Unknown]
  - Tumour lysis syndrome [Recovered/Resolved]
  - Fatigue [Recovered/Resolved]
  - Aspartate aminotransferase increased [Recovered/Resolved with Sequelae]
  - Pneumonia haemophilus [Recovered/Resolved]
  - Neutrophil count decreased [Recovered/Resolved]
  - Hepatic cytolysis [Not Recovered/Not Resolved]
  - Sinusitis aspergillus [Recovered/Resolved]
  - Thrombocytopenia [Unknown]
  - Febrile bone marrow aplasia [Recovered/Resolved]
  - Febrile neutropenia [Unknown]
  - Lymphopenia [Unknown]
  - Febrile bone marrow aplasia [Unknown]
  - Pneumonia [Unknown]
  - COVID-19 [Unknown]
  - Escherichia sepsis [Unknown]
  - Human herpesvirus 6 infection [Unknown]
  - Bronchitis [Unknown]
  - Sepsis [Unknown]
  - Device related infection [Unknown]
  - Hepatitis E [Unknown]
  - Influenza [Unknown]
  - Post-acute COVID-19 syndrome [Unknown]
  - Staphylococcal infection [Unknown]
  - Staphylococcal sepsis [Unknown]
  - Stomatitis [Unknown]
  - Colitis [Unknown]
  - Nausea [Unknown]
  - Vomiting [Unknown]
  - Rectal haemorrhage [Unknown]
  - Platelet count decreased [Unknown]
  - Lymphocyte count decreased [Unknown]
  - White blood cell count decreased [Unknown]
  - Gamma-glutamyltransferase increased [Unknown]
  - Lung disorder [Unknown]
  - Pleural effusion [Unknown]
  - Hypokalaemia [Unknown]
  - Decreased appetite [Unknown]
  - Hyperglycaemia [Unknown]
  - Hyponatraemia [Unknown]
  - Pyrexia [Unknown]
  - General physical health deterioration [Unknown]
  - Cholestasis [Unknown]
  - Prostate cancer [Unknown]
  - Presyncope [Unknown]
  - Renal failure [Unknown]
  - Hypogammaglobulinaemia [Unknown]
  - Angiopathy [Unknown]
